FAERS Safety Report 5994037-9 (Version None)
Quarter: 2008Q4

REPORT INFORMATION
  Report Type: 
  Country: None (occurrence: None)
  Receive Date: 20081212
  Receipt Date: 20081204
  Transmission Date: 20090506
  Serious: Yes (Other)
  Sender: FDA-Public Use
  Company Number: US-ABBOTT-08P-163-0458695-00

PATIENT
  Sex: Male
  Weight: 58.112 kg

DRUGS (2)
  1. HUMIRA [Suspect]
     Indication: RHEUMATOID ARTHRITIS
     Route: 058
     Dates: start: 20060101
  2. PREDNISONE TAB [Concomitant]
     Indication: RHEUMATOID ARTHRITIS
     Route: 048
     Dates: start: 20070501

REACTIONS (6)
  - ANAEMIA [None]
  - FALL [None]
  - INCREASED TENDENCY TO BRUISE [None]
  - INTERVERTEBRAL DISC PROTRUSION [None]
  - PLATELET COUNT DECREASED [None]
  - SPINAL FRACTURE [None]
